FAERS Safety Report 7292852-5 (Version None)
Quarter: 2011Q1

REPORT INFORMATION
  Report Type: 
  Country: None (occurrence: None)
  Receive Date: 20110215
  Receipt Date: 20110208
  Transmission Date: 20110831
  Serious: Yes (Other)
  Sender: FDA-Public Use
  Company Number: CA-ASTRAZENECA-2011SE07095

PATIENT
  Sex: Male
  Weight: 4.5 kg

DRUGS (2)
  1. PROPOFOL [Suspect]
     Indication: GENERAL ANAESTHESIA
     Dosage: TOTAL DOSE: 130 MG (29 MG/KG)
     Route: 042
  2. REMIFENTANIL [Concomitant]
     Indication: GENERAL ANAESTHESIA
     Route: 042

REACTIONS (3)
  - ACCIDENTAL OVERDOSE [None]
  - INCORRECT DOSE ADMINISTERED BY DEVICE [None]
  - RESPIRATORY RATE DECREASED [None]
